FAERS Safety Report 12007019 (Version 1)
Quarter: 2016Q1

REPORT INFORMATION
  Report Type: Report from Study
  Country: DE (occurrence: DE)
  Receive Date: 20160204
  Receipt Date: 20160204
  Transmission Date: 20160526
  Serious: Yes (Hospitalization)
  Sender: FDA-Public Use
  Company Number: DE-BIOGEN-2015BI00160844

PATIENT
  Age: 57 Year
  Sex: Female

DRUGS (5)
  1. CYMBALTA [Concomitant]
     Active Substance: DULOXETINE HYDROCHLORIDE
     Indication: DEPRESSION
     Route: 065
     Dates: start: 20111202
  2. NOVAMINSULFON [Concomitant]
     Active Substance: METAMIZOLE
     Indication: GAIT DISTURBANCE
     Route: 065
  3. OPIPRAMOLE [Concomitant]
     Indication: DEPRESSION
     Route: 065
     Dates: start: 20151013, end: 201512
  4. TYSABRI [Suspect]
     Active Substance: NATALIZUMAB
     Indication: MULTIPLE SCLEROSIS
     Dosage: INFUSED OVER 1 HOUR
     Route: 042
     Dates: start: 20081127
  5. IBUPROFEN. [Concomitant]
     Active Substance: IBUPROFEN
     Indication: GAIT DISTURBANCE
     Dosage: AS NEEDED
     Route: 065
     Dates: start: 20070806

REACTIONS (1)
  - Cholelithiasis [Recovered/Resolved]

NARRATIVE: CASE EVENT DATE: 201509
